FAERS Safety Report 9633095 (Version 1)
Quarter: 2013Q4

REPORT INFORMATION
  Report Type: Spontaneous
  Country: US (occurrence: US)
  Receive Date: 20131018
  Receipt Date: 20131018
  Transmission Date: 20140711
  Serious: Yes (Other)
  Sender: FDA-Public Use
  Company Number: US-ASTRAZENECA-2013SE75822

PATIENT
  Sex: 0

DRUGS (2)
  1. BRILINTA [Suspect]
     Route: 048
  2. ANGIOMAX [Concomitant]
     Indication: PERCUTANEOUS CORONARY INTERVENTION

REACTIONS (1)
  - Arterial occlusive disease [Unknown]
